FAERS Safety Report 6243970-1 (Version None)
Quarter: 2009Q2

REPORT INFORMATION
  Report Type: 
  Country: None (occurrence: None)
  Receive Date: 20090623
  Receipt Date: 20090608
  Transmission Date: 20091009
  Serious: Yes (Other)
  Sender: FDA-Public Use
  Company Number: PHHY2009US22784

PATIENT
  Age: 59 Year
  Sex: Female

DRUGS (1)
  1. VISUDYNE [Suspect]
     Indication: CHORIORETINAL DISORDER
     Dosage: 6 MG/M^2 ONCE IV
     Route: 042

REACTIONS (6)
  - EXUDATIVE RETINOPATHY [None]
  - MACULAR OEDEMA [None]
  - PHOTOPSIA [None]
  - POLYPOIDAL CHOROIDAL VASCULOPATHY [None]
  - RETINAL ISCHAEMIA [None]
  - RETINAL VASCULAR DISORDER [None]
